FAERS Safety Report 7586025-6 (Version None)
Quarter: 2011Q2

REPORT INFORMATION
  Report Type: 
  Country: None (occurrence: None)
  Receive Date: 20110624
  Receipt Date: 20110615
  Transmission Date: 20111010
  Serious: Yes (Other)
  Sender: FDA-Public Use
  Company Number: 2011SP028041

PATIENT

DRUGS (2)
  1. PEGASYS [Suspect]
     Indication: PRODUCT USED FOR UNKNOWN INDICATION
     Dates: end: 20081201
  2. RIBAVIRIN [Suspect]
     Indication: HEPATITIS C
     Dates: end: 20081201

REACTIONS (1)
  - THYROID CANCER [None]
